FAERS Safety Report 6172030-3 (Version None)
Quarter: 2009Q2

REPORT INFORMATION
  Report Type: 
  Country: None (occurrence: None)
  Receive Date: 20090424
  Receipt Date: 20090128
  Transmission Date: 20091009
  Serious: No
  Sender: FDA-Public Use
  Company Number: ALL1-2009-00214

PATIENT
  Age: 10 Year
  Sex: Male

DRUGS (2)
  1. VYVANSE [Suspect]
     Indication: ATTENTION DEFICIT/HYPERACTIVITY DISORDER
     Dosage: 30 MG, 1X/DAY, QD, ORAL, 20 MG, 1X/DAY; QD, ORAL
     Route: 048
     Dates: start: 20081101, end: 20090125
  2. VYVANSE [Suspect]
     Indication: ATTENTION DEFICIT/HYPERACTIVITY DISORDER
     Dosage: 30 MG, 1X/DAY, QD, ORAL, 20 MG, 1X/DAY; QD, ORAL
     Route: 048
     Dates: start: 20090126

REACTIONS (2)
  - DRUG EFFECT INCREASED [None]
  - FLAT AFFECT [None]
